FAERS Safety Report 6149447-6 (Version None)
Quarter: 2009Q2

REPORT INFORMATION
  Report Type: 
  Country: None (occurrence: None)
  Receive Date: 20090406
  Receipt Date: 20090406
  Transmission Date: 20091009
  Serious: Yes (Other)
  Sender: FDA-Public Use
  Company Number: None

PATIENT
  Age: 80 Year
  Sex: Female
  Weight: 68.0396 kg

DRUGS (2)
  1. FLUDARA [Suspect]
     Indication: CHRONIC LYMPHOCYTIC LEUKAEMIA
     Dosage: 250 MG EVERY 3 WEEKS IV BOLUS
     Route: 040
     Dates: start: 20060101, end: 20090401
  2. CYTOXAN [Suspect]
     Dosage: 25 MG EVERY 3 WEEKS IV
     Route: 042

REACTIONS (2)
  - NAUSEA [None]
  - VOMITING [None]
